FAERS Safety Report 7489625-7 (Version None)
Quarter: 2011Q2

REPORT INFORMATION
  Report Type: 
  Country: None (occurrence: None)
  Receive Date: 20110519
  Receipt Date: 20110511
  Transmission Date: 20111010
  Serious: No
  Sender: FDA-Public Use
  Company Number: US-BIOGENIDEC-2010BI035799

PATIENT
  Sex: Female

DRUGS (2)
  1. TYSABRI [Suspect]
     Route: 042
     Dates: start: 20110404
  2. TYSABRI [Suspect]
     Indication: MULTIPLE SCLEROSIS
     Route: 042
     Dates: start: 20080129, end: 20100921

REACTIONS (23)
  - MOTOR DYSFUNCTION [None]
  - MUSCLE SPASMS [None]
  - URINARY INCONTINENCE [None]
  - LOSS OF LIBIDO [None]
  - BACK PAIN [None]
  - GASTROINTESTINAL DISORDER [None]
  - DECREASED APPETITE [None]
  - HEADACHE [None]
  - CENTRAL NERVOUS SYSTEM LESION [None]
  - AMNESIA [None]
  - VISUAL IMPAIRMENT [None]
  - COORDINATION ABNORMAL [None]
  - FATIGUE [None]
  - BLINDNESS UNILATERAL [None]
  - MUSCLE SPASTICITY [None]
  - GAIT DISTURBANCE [None]
  - BALANCE DISORDER [None]
  - BODY TEMPERATURE FLUCTUATION [None]
  - SPEECH DISORDER [None]
  - MOOD SWINGS [None]
  - NUCLEAR MAGNETIC RESONANCE IMAGING ABNORMAL [None]
  - DYSPNOEA [None]
  - CHEST PAIN [None]
